FAERS Safety Report 24446015 (Version 1)
Quarter: 2024Q4

REPORT INFORMATION
  Report Type: Spontaneous
  Country: CN (occurrence: CN)
  Receive Date: 20241016
  Receipt Date: 20241016
  Transmission Date: 20250114
  Serious: Yes (Hospitalization, Other)
  Sender: JIANGSU HANSOH PHARMACEUTICAL
  Company Number: CN-Jiangsu Hansoh Pharmaceutical Co., Ltd-2163141

PATIENT
  Age: 68 Year
  Weight: 90 kg

DRUGS (2)
  1. GEMCITABINE HYDROCHLORIDE [Suspect]
     Active Substance: GEMCITABINE HYDROCHLORIDE
     Indication: Pancreatic carcinoma stage I
     Dates: start: 20240910, end: 20240910
  2. PACLITAXEL [Suspect]
     Active Substance: PACLITAXEL
     Dates: start: 20240909, end: 20240909

REACTIONS (3)
  - Myelosuppression [Recovering/Resolving]
  - Tonsillitis [Recovering/Resolving]
  - Pyrexia [Recovering/Resolving]

NARRATIVE: CASE EVENT DATE: 20240915
